FAERS Safety Report 15717412 (Version 6)
Quarter: 2020Q3

REPORT INFORMATION
  Report Type: Report from Study
  Country: US (occurrence: US)
  Receive Date: 20181213
  Receipt Date: 20190718
  Transmission Date: 20201104
  Serious: Yes (Other)
  Sender: FDA-Public Use
  Company Number: US-ROCHE-2184107

PATIENT
  Age: 66 Year
  Sex: Female
  Weight: 45.7 kg

DRUGS (39)
  1. BENADRYL [Concomitant]
     Active Substance: DIPHENHYDRAMINE HYDROCHLORIDE
     Indication: PREMEDICATION
     Route: 048
     Dates: start: 20180907, end: 20180907
  2. LOMOTIL [Concomitant]
     Active Substance: ATROPINE SULFATE\DIPHENOXYLATE HYDROCHLORIDE
     Route: 048
     Dates: start: 20180922, end: 20180923
  3. PROTONIX [Concomitant]
     Active Substance: PANTOPRAZOLE SODIUM
     Indication: PROPHYLAXIS
     Route: 048
     Dates: start: 20180920, end: 20180924
  4. MOSUNETUZUMAB. [Suspect]
     Active Substance: MOSUNETUZUMAB
     Indication: B-CELL LYMPHOMA
     Dosage: MOST RECENT DOSE OF BTCT4465A PRIOR TO SAE ONSET (FIRST OCCURRENCE): 31/AUG/2018 AT 19: 11?MOST RECE
     Route: 042
     Dates: start: 20180831
  5. DECADRON [Concomitant]
     Active Substance: DEXAMETHASONE
     Route: 042
     Dates: start: 20180921, end: 20180921
  6. TYLENOL [Concomitant]
     Active Substance: ACETAMINOPHEN
     Route: 048
     Dates: start: 20180921, end: 20180921
  7. AMBIEN [Concomitant]
     Active Substance: ZOLPIDEM TARTRATE
     Indication: INSOMNIA
     Route: 048
     Dates: start: 20180922, end: 20180923
  8. FLUTICASONE;SALMETEROL [Concomitant]
     Active Substance: FLUTICASONE PROPIONATE\SALMETEROL XINAFOATE
     Indication: DYSPNOEA
     Dosage: 1 PUFF
     Route: 055
     Dates: start: 20180920, end: 20180924
  9. MYCELEX TROCHE [Concomitant]
     Indication: INFECTION PROPHYLAXIS
     Route: 065
     Dates: start: 20180920, end: 20180924
  10. ATEZOLIZUMAB. [Suspect]
     Active Substance: ATEZOLIZUMAB
     Indication: B-CELL LYMPHOMA
     Dosage: DATE OF MOST RECENT DOSE OF ATEZOLIZUMAB PRIOR TO AE ONSET (SECOND OCCURRENCE): 21/SEP/2018 AT 17:00
     Route: 042
     Dates: start: 20180921
  11. DECADRON [Concomitant]
     Active Substance: DEXAMETHASONE
     Route: 042
     Dates: start: 20180907, end: 20180907
  12. TYLENOL [Concomitant]
     Active Substance: ACETAMINOPHEN
     Indication: PAIN
     Route: 048
     Dates: start: 20180831, end: 20180831
  13. TYLENOL [Concomitant]
     Active Substance: ACETAMINOPHEN
     Route: 048
     Dates: start: 20180922, end: 20180922
  14. ALBUTEROL;IPRATROPIUM [Concomitant]
     Indication: DYSPNOEA
     Dosage: 1 PUFF
     Route: 055
     Dates: start: 20180920, end: 20180923
  15. ZOVIRAX [Concomitant]
     Active Substance: ACYCLOVIR
     Indication: INFECTION PROPHYLAXIS
     Route: 048
     Dates: start: 20180920, end: 20180924
  16. POTASSIUM CHLORIDE. [Concomitant]
     Active Substance: POTASSIUM CHLORIDE
     Dosage: 20 OTHER
     Route: 042
     Dates: start: 20181004, end: 20181004
  17. BENADRYL [Concomitant]
     Active Substance: DIPHENHYDRAMINE HYDROCHLORIDE
     Route: 048
     Dates: start: 20181011, end: 20181011
  18. DECADRON [Concomitant]
     Active Substance: DEXAMETHASONE
     Route: 042
     Dates: start: 20180914, end: 20180914
  19. ALBUTEROL [SALBUTAMOL] [Concomitant]
     Active Substance: ALBUTEROL
     Indication: DYSPNOEA
     Route: 055
     Dates: start: 20180831, end: 20180831
  20. BACTRIM [Concomitant]
     Active Substance: SULFAMETHOXAZOLE\TRIMETHOPRIM
     Indication: SALMONELLOSIS
     Dosage: 1 TABLET
     Route: 048
     Dates: start: 2018, end: 20190213
  21. BENADRYL [Concomitant]
     Active Substance: DIPHENHYDRAMINE HYDROCHLORIDE
     Route: 048
     Dates: start: 20180910, end: 20180910
  22. TYLENOL [Concomitant]
     Active Substance: ACETAMINOPHEN
     Route: 048
     Dates: start: 20180914, end: 20180914
  23. BIOTENE [GLUCOSE OXIDASE;LACTOFERRIN;LACTOPEROXIDASE;LYSOZYME] [Concomitant]
     Active Substance: DEVICE\GLUCOSE OXIDASE\LACTOFERRIN\LACTOPEROXIDASE BOVINE\LYSOZYME HYDROCHLORIDE
     Route: 065
     Dates: start: 20180920, end: 20180924
  24. POTASSIUM CHLORIDE. [Concomitant]
     Active Substance: POTASSIUM CHLORIDE
     Indication: BLOOD POTASSIUM DECREASED
     Dosage: 40 OTHER
     Route: 042
     Dates: start: 20180923, end: 20180924
  25. BENADRYL [Concomitant]
     Active Substance: DIPHENHYDRAMINE HYDROCHLORIDE
     Route: 048
     Dates: start: 20180914, end: 20180914
  26. TYLENOL [Concomitant]
     Active Substance: ACETAMINOPHEN
     Indication: PREMEDICATION
     Route: 048
     Dates: start: 20180907, end: 20180907
  27. ALLOPURINOL. [Concomitant]
     Active Substance: ALLOPURINOL
     Indication: PROPHYLAXIS
     Route: 048
     Dates: start: 20180920, end: 20180924
  28. INFLUENZA VACCINE [Concomitant]
     Active Substance: INFLUENZA VIRUS VACCINE
     Route: 058
     Dates: start: 20181011, end: 20181011
  29. BENADRYL [Concomitant]
     Active Substance: DIPHENHYDRAMINE HYDROCHLORIDE
     Route: 048
     Dates: start: 20180921, end: 20180921
  30. DECADRON [Concomitant]
     Active Substance: DEXAMETHASONE
     Route: 042
     Dates: start: 20180831, end: 20180831
  31. MUCINEX [Concomitant]
     Active Substance: GUAIFENESIN
     Indication: COUGH
     Route: 048
     Dates: start: 20180910
  32. LOMOTIL [Concomitant]
     Active Substance: ATROPINE SULFATE\DIPHENOXYLATE HYDROCHLORIDE
     Indication: DIARRHOEA
     Route: 048
     Dates: start: 20180910
  33. BENADRYL [Concomitant]
     Active Substance: DIPHENHYDRAMINE HYDROCHLORIDE
     Indication: INSOMNIA
     Route: 048
     Dates: start: 20180831, end: 20180831
  34. DECADRON [Concomitant]
     Active Substance: DEXAMETHASONE
     Route: 042
     Dates: start: 20181011, end: 20181011
  35. TYLENOL [Concomitant]
     Active Substance: ACETAMINOPHEN
     Route: 048
     Dates: start: 20181011, end: 20181011
  36. IMODIUM [Concomitant]
     Active Substance: LOPERAMIDE HYDROCHLORIDE
     Indication: DIARRHOEA
     Route: 048
     Dates: start: 20180914
  37. POTASSIUM CHLORIDE. [Concomitant]
     Active Substance: POTASSIUM CHLORIDE
     Dosage: 40 OTHER
     Route: 042
     Dates: start: 20181004, end: 20181004
  38. MAGNESIUM SULFATE. [Concomitant]
     Active Substance: MAGNESIUM SULFATE
     Indication: BLOOD MAGNESIUM DECREASED
     Route: 042
     Dates: start: 20180923, end: 20180923
  39. NEULASTA [Concomitant]
     Active Substance: PEGFILGRASTIM
     Indication: NEUTROPENIA
     Route: 058
     Dates: start: 20180907, end: 20180907

REACTIONS (2)
  - Neutropenia [Recovered/Resolved]
  - Neutropenia [Recovered/Resolved]

NARRATIVE: CASE EVENT DATE: 20180831
